FAERS Safety Report 12417753 (Version 5)
Quarter: 2016Q3

REPORT INFORMATION
  Report Type: Spontaneous
  Country: GB (occurrence: GB)
  Receive Date: 20160530
  Receipt Date: 20160712
  Transmission Date: 20161109
  Serious: Yes (Other)
  Sender: FDA-Public Use
  Company Number: GB-AMGEN-GBRSP2016043996

PATIENT
  Age: 41 Year
  Sex: Female

DRUGS (12)
  1. METOCLOPRAMIDE. [Concomitant]
     Active Substance: METOCLOPRAMIDE
     Dosage: UNK
  2. DOCETAXEL. [Concomitant]
     Active Substance: DOCETAXEL
     Dosage: UNK
  3. CLEXANE [Concomitant]
     Active Substance: ENOXAPARIN SODIUM
     Dosage: UNK
     Route: 058
  4. PALONOSETRON [Concomitant]
     Active Substance: PALONOSETRON
     Dosage: UNK
  5. CYCLOPHOSPHAMIDE. [Concomitant]
     Active Substance: CYCLOPHOSPHAMIDE
     Dosage: UNK
  6. NEULASTA [Suspect]
     Active Substance: PEGFILGRASTIM
     Indication: PRODUCT USED FOR UNKNOWN INDICATION
     Dosage: UNK
     Route: 065
  7. EPIRUBICIN [Concomitant]
     Active Substance: EPIRUBICIN
     Dosage: UNK
  8. APREPITANT. [Concomitant]
     Active Substance: APREPITANT
     Dosage: UNK
     Route: 065
  9. DOMPERIDONE [Concomitant]
     Active Substance: DOMPERIDONE
     Dosage: UNK
  10. DEXAMETHASONE. [Concomitant]
     Active Substance: DEXAMETHASONE
     Dosage: UNK
  11. TAXOTERE [Concomitant]
     Active Substance: DOCETAXEL
     Dosage: UNK
  12. LANSOPRAZOLE. [Concomitant]
     Active Substance: LANSOPRAZOLE
     Dosage: UNK

REACTIONS (14)
  - Thrombosis [Unknown]
  - Rosacea [Not Recovered/Not Resolved]
  - Ear disorder [Unknown]
  - Musculoskeletal stiffness [Unknown]
  - Alopecia [Unknown]
  - Pain in extremity [Unknown]
  - Fatigue [Unknown]
  - Neuropathy peripheral [Unknown]
  - Pyrexia [Unknown]
  - Erythema [Unknown]
  - Pruritus [Unknown]
  - Epistaxis [Unknown]
  - Peripheral swelling [Unknown]
  - Blister [Unknown]

NARRATIVE: CASE EVENT DATE: 2016
